FAERS Safety Report 6179454-9 (Version None)
Quarter: 2009Q2

REPORT INFORMATION
  Report Type: 
  Country: None (occurrence: None)
  Receive Date: 20090505
  Receipt Date: 20090501
  Transmission Date: 20091009
  Serious: No
  Sender: FDA-Public Use
  Company Number: US-B.I. PHARMACEUTICALS,INC./RIDGEFIELD-2009-BP-05509BP

PATIENT
  Sex: Female

DRUGS (3)
  1. SPIRIVA [Suspect]
     Indication: EMPHYSEMA
  2. SPIRIVA [Suspect]
     Indication: BRONCHITIS
  3. SPIRIVA [Suspect]
     Indication: ASTHMA

REACTIONS (1)
  - GAIT DISTURBANCE [None]
